FAERS Safety Report 24438580 (Version 3)
Quarter: 2025Q2

REPORT INFORMATION
  Report Type: Spontaneous
  Country: CA (occurrence: CA)
  Receive Date: 20241015
  Receipt Date: 20250401
  Transmission Date: 20250716
  Serious: Yes (Life-Threatening, Hospitalization, Disabling, Other)
  Sender: BRISTOL MYERS SQUIBB
  Company Number: CA-BRISTOL-MYERS SQUIBB COMPANY-2024-155108

PATIENT
  Age: 44 Year
  Sex: Female
  Weight: 78 kg

DRUGS (460)
  1. ORENCIA [Suspect]
     Active Substance: ABATACEPT
     Indication: Rheumatoid arthritis
     Route: 058
  2. ORENCIA [Suspect]
     Active Substance: ABATACEPT
     Route: 058
  3. ORENCIA [Suspect]
     Active Substance: ABATACEPT
     Route: 058
  4. ORENCIA [Suspect]
     Active Substance: ABATACEPT
     Route: 058
  5. ORENCIA [Suspect]
     Active Substance: ABATACEPT
     Route: 058
  6. ORENCIA [Suspect]
     Active Substance: ABATACEPT
  7. ORENCIA [Suspect]
     Active Substance: ABATACEPT
     Route: 058
  8. ORENCIA [Suspect]
     Active Substance: ABATACEPT
     Indication: Rheumatoid arthritis
     Route: 042
  9. ORENCIA [Suspect]
     Active Substance: ABATACEPT
     Route: 042
  10. ORENCIA [Suspect]
     Active Substance: ABATACEPT
     Route: 042
  11. ORENCIA [Suspect]
     Active Substance: ABATACEPT
     Indication: Rheumatoid arthritis
     Route: 048
  12. ORENCIA [Suspect]
     Active Substance: ABATACEPT
  13. ORENCIA [Suspect]
     Active Substance: ABATACEPT
  14. TRIAMCINOLONE ACETONIDE [Suspect]
     Active Substance: TRIAMCINOLONE ACETONIDE
     Indication: Rheumatoid arthritis
     Route: 014
  15. ACETAMINOPHEN [Concomitant]
     Active Substance: ACETAMINOPHEN
     Indication: Rheumatoid arthritis
  16. ACETAMINOPHEN [Concomitant]
     Active Substance: ACETAMINOPHEN
     Indication: Pyrexia
  17. ACETAMINOPHEN [Concomitant]
     Active Substance: ACETAMINOPHEN
     Indication: Pain
  18. OXYCODONE AND ACETAMINOPHEN [Concomitant]
     Active Substance: ACETAMINOPHEN\OXYCODONE HYDROCHLORIDE
     Indication: Product used for unknown indication
  19. ACTEMRA [Concomitant]
     Active Substance: TOCILIZUMAB
     Indication: Rheumatoid arthritis
  20. ACTEMRA [Concomitant]
     Active Substance: TOCILIZUMAB
  21. ACTEMRA [Concomitant]
     Active Substance: TOCILIZUMAB
     Route: 016
  22. ACTEMRA [Concomitant]
     Active Substance: TOCILIZUMAB
     Route: 058
  23. ACTEMRA [Concomitant]
     Active Substance: TOCILIZUMAB
     Route: 016
  24. ACTEMRA [Concomitant]
     Active Substance: TOCILIZUMAB
     Route: 016
  25. ACTEMRA [Concomitant]
     Active Substance: TOCILIZUMAB
     Route: 048
  26. ACTEMRA [Concomitant]
     Active Substance: TOCILIZUMAB
     Route: 061
  27. ACTEMRA [Concomitant]
     Active Substance: TOCILIZUMAB
     Route: 058
  28. ACTEMRA [Concomitant]
     Active Substance: TOCILIZUMAB
     Route: 042
  29. ACTEMRA [Concomitant]
     Active Substance: TOCILIZUMAB
     Route: 042
  30. ACTEMRA [Concomitant]
     Active Substance: TOCILIZUMAB
  31. ACTEMRA [Concomitant]
     Active Substance: TOCILIZUMAB
     Route: 042
  32. ACTEMRA [Concomitant]
     Active Substance: TOCILIZUMAB
     Route: 042
  33. ACTEMRA [Concomitant]
     Active Substance: TOCILIZUMAB
     Route: 058
  34. ACTEMRA [Concomitant]
     Active Substance: TOCILIZUMAB
     Route: 042
  35. ACTEMRA [Concomitant]
     Active Substance: TOCILIZUMAB
     Route: 058
  36. ACTEMRA [Concomitant]
     Active Substance: TOCILIZUMAB
  37. ACTEMRA [Concomitant]
     Active Substance: TOCILIZUMAB
     Route: 042
  38. ACTEMRA [Concomitant]
     Active Substance: TOCILIZUMAB
     Route: 042
  39. ACTEMRA [Concomitant]
     Active Substance: TOCILIZUMAB
  40. ACTEMRA [Concomitant]
     Active Substance: TOCILIZUMAB
     Route: 042
  41. ACTEMRA [Concomitant]
     Active Substance: TOCILIZUMAB
  42. ACTEMRA [Concomitant]
     Active Substance: TOCILIZUMAB
     Route: 042
  43. ACTEMRA [Concomitant]
     Active Substance: TOCILIZUMAB
     Route: 042
  44. ACTEMRA [Concomitant]
     Active Substance: TOCILIZUMAB
     Route: 042
  45. ACTEMRA [Concomitant]
     Active Substance: TOCILIZUMAB
     Route: 058
  46. ACTEMRA [Concomitant]
     Active Substance: TOCILIZUMAB
  47. ACTEMRA [Concomitant]
     Active Substance: TOCILIZUMAB
     Route: 042
  48. ACTEMRA [Concomitant]
     Active Substance: TOCILIZUMAB
     Route: 042
  49. ACTEMRA [Concomitant]
     Active Substance: TOCILIZUMAB
     Route: 048
  50. ACTEMRA [Concomitant]
     Active Substance: TOCILIZUMAB
     Route: 042
  51. ACTEMRA [Concomitant]
     Active Substance: TOCILIZUMAB
     Route: 042
  52. ACTEMRA [Concomitant]
     Active Substance: TOCILIZUMAB
     Route: 042
  53. ADALIMUMAB [Concomitant]
     Active Substance: ADALIMUMAB
     Indication: Rheumatoid arthritis
     Route: 058
  54. ADALIMUMAB [Concomitant]
     Active Substance: ADALIMUMAB
     Indication: Psoriatic arthropathy
     Route: 058
  55. ADALIMUMAB [Concomitant]
     Active Substance: ADALIMUMAB
     Route: 042
  56. ADALIMUMAB [Concomitant]
     Active Substance: ADALIMUMAB
     Route: 048
  57. ADALIMUMAB [Concomitant]
     Active Substance: ADALIMUMAB
  58. ALENDRONATE SODIUM [Concomitant]
     Active Substance: ALENDRONATE SODIUM
     Indication: Rheumatoid arthritis
     Route: 048
  59. ALENDRONATE SODIUM [Concomitant]
     Active Substance: ALENDRONATE SODIUM
  60. ALENDRONATE SODIUM [Concomitant]
     Active Substance: ALENDRONATE SODIUM
     Route: 048
  61. ALENDRONIC ACID [Concomitant]
     Active Substance: ALENDRONIC ACID
     Indication: Rheumatoid arthritis
  62. ALENDRONIC ACID [Concomitant]
     Active Substance: ALENDRONIC ACID
     Route: 016
  63. ALENDRONIC ACID [Concomitant]
     Active Substance: ALENDRONIC ACID
  64. ALENDRONIC ACID [Concomitant]
     Active Substance: ALENDRONIC ACID
     Route: 048
  65. ALENDRONIC ACID [Concomitant]
     Active Substance: ALENDRONIC ACID
  66. PREDNISONE [Concomitant]
     Active Substance: PREDNISONE
     Indication: Systemic lupus erythematosus
     Route: 048
  67. PREDNISONE [Concomitant]
     Active Substance: PREDNISONE
     Indication: Synovitis
  68. PREDNISONE [Concomitant]
     Active Substance: PREDNISONE
     Indication: Rheumatoid arthritis
  69. PREDNISONE [Concomitant]
     Active Substance: PREDNISONE
     Indication: Psoriatic arthropathy
  70. PREDNISONE [Concomitant]
     Active Substance: PREDNISONE
     Indication: Pemphigus
     Route: 048
  71. PREDNISONE [Concomitant]
     Active Substance: PREDNISONE
     Indication: Inflammation
     Route: 048
  72. PREDNISONE [Concomitant]
     Active Substance: PREDNISONE
     Indication: Bursitis
     Route: 048
  73. PREDNISONE [Concomitant]
     Active Substance: PREDNISONE
  74. PREDNISONE [Concomitant]
     Active Substance: PREDNISONE
  75. APREMILAST [Concomitant]
     Active Substance: APREMILAST
     Indication: Product used for unknown indication
     Route: 048
  76. APREMILAST [Concomitant]
     Active Substance: APREMILAST
  77. APREPITANT [Concomitant]
     Active Substance: APREPITANT
     Indication: Product used for unknown indication
     Route: 042
  78. APREPITANT [Concomitant]
     Active Substance: APREPITANT
     Route: 042
  79. APREPITANT [Concomitant]
     Active Substance: APREPITANT
  80. APREPITANT [Concomitant]
     Active Substance: APREPITANT
     Route: 048
  81. ASACOL [Concomitant]
     Active Substance: MESALAMINE
     Indication: Product used for unknown indication
  82. CALCIUM CARBONATE [Concomitant]
     Active Substance: CALCIUM CARBONATE
     Indication: Product used for unknown indication
  83. CALCIUM GLUBIONATE [Concomitant]
     Active Substance: CALCIUM GLUBIONATE
     Indication: Product used for unknown indication
     Route: 016
  84. CALCIUM GLUBIONATE [Concomitant]
     Active Substance: CALCIUM GLUBIONATE
  85. CALCIUM GLUBIONATE [Concomitant]
     Active Substance: CALCIUM GLUBIONATE
  86. CALCIUM\CHOLECALCIFEROL [Concomitant]
     Active Substance: CALCIUM\CHOLECALCIFEROL
     Indication: Product used for unknown indication
  87. CELEBREX [Concomitant]
     Active Substance: CELECOXIB
     Indication: Rheumatoid arthritis
     Route: 048
  88. CELEBREX [Concomitant]
     Active Substance: CELECOXIB
     Indication: Arthritis
     Route: 048
  89. CELEBREX [Concomitant]
     Active Substance: CELECOXIB
  90. CELECOXIB [Concomitant]
     Active Substance: CELECOXIB
     Indication: Product used for unknown indication
  91. CELECOXIB [Concomitant]
     Active Substance: CELECOXIB
  92. CERTOLIZUMAB PEGOL [Concomitant]
     Active Substance: CERTOLIZUMAB PEGOL
     Indication: Product used for unknown indication
  93. CETIRIZINE HYDROCHLORIDE AND PSEUDOEPHEDRINE HYDROCHLORIDE [Concomitant]
     Active Substance: CETIRIZINE HYDROCHLORIDE\PSEUDOEPHEDRINE HYDROCHLORIDE
     Indication: Rheumatoid arthritis
  94. CETIRIZINE HYDROCHLORIDE AND PSEUDOEPHEDRINE HYDROCHLORIDE [Concomitant]
     Active Substance: CETIRIZINE HYDROCHLORIDE\PSEUDOEPHEDRINE HYDROCHLORIDE
     Route: 016
  95. CETIRIZINE HYDROCHLORIDE AND PSEUDOEPHEDRINE HYDROCHLORIDE [Concomitant]
     Active Substance: CETIRIZINE HYDROCHLORIDE\PSEUDOEPHEDRINE HYDROCHLORIDE
  96. CHLORAPREP [Concomitant]
     Active Substance: CHLORHEXIDINE GLUCONATE\ISOPROPYL ALCOHOL
     Indication: Product used for unknown indication
     Route: 048
  97. CHLORAPREP [Concomitant]
     Active Substance: CHLORHEXIDINE GLUCONATE\ISOPROPYL ALCOHOL
     Route: 061
  98. CHLORAPREP [Concomitant]
     Active Substance: CHLORHEXIDINE GLUCONATE\ISOPROPYL ALCOHOL
  99. CHLORAPREP [Concomitant]
     Active Substance: CHLORHEXIDINE GLUCONATE\ISOPROPYL ALCOHOL
     Route: 061
  100. CHLORAPREP [Concomitant]
     Active Substance: CHLORHEXIDINE GLUCONATE\ISOPROPYL ALCOHOL
     Route: 048
  101. CHLORHEXIDINE GLUCONATE [Concomitant]
     Active Substance: CHLORHEXIDINE GLUCONATE
     Indication: Product used for unknown indication
  102. CHLORHEXIDINE GLUCONATE [Concomitant]
     Active Substance: CHLORHEXIDINE GLUCONATE
     Route: 002
  103. CHLORHEXIDINE GLUCONATE [Concomitant]
     Active Substance: CHLORHEXIDINE GLUCONATE
     Route: 002
  104. CHLORHEXIDINE GLUCONATE [Concomitant]
     Active Substance: CHLORHEXIDINE GLUCONATE
     Route: 061
  105. CHLORHEXIDINE GLUCONATE [Concomitant]
     Active Substance: CHLORHEXIDINE GLUCONATE
  106. CHLORHEXIDINE GLUCONATE [Concomitant]
     Active Substance: CHLORHEXIDINE GLUCONATE
     Route: 061
  107. CHLORHEXIDINE GLUCONATE [Concomitant]
     Active Substance: CHLORHEXIDINE GLUCONATE
  108. CHLORHEXIDINE GLUCONATE [Concomitant]
     Active Substance: CHLORHEXIDINE GLUCONATE
     Route: 048
  109. CHLORHEXIDINE GLUCONATE [Concomitant]
     Active Substance: CHLORHEXIDINE GLUCONATE
  110. CIMZIA [Concomitant]
     Active Substance: CERTOLIZUMAB PEGOL
     Indication: Rheumatoid arthritis
  111. CIMZIA [Concomitant]
     Active Substance: CERTOLIZUMAB PEGOL
     Indication: Psoriatic arthropathy
  112. CIMZIA [Concomitant]
     Active Substance: CERTOLIZUMAB PEGOL
     Indication: Psoriasis
  113. CIMZIA [Concomitant]
     Active Substance: CERTOLIZUMAB PEGOL
  114. CIMZIA [Concomitant]
     Active Substance: CERTOLIZUMAB PEGOL
  115. CIMZIA [Concomitant]
     Active Substance: CERTOLIZUMAB PEGOL
     Route: 058
  116. CIMZIA [Concomitant]
     Active Substance: CERTOLIZUMAB PEGOL
     Route: 042
  117. CIMZIA [Concomitant]
     Active Substance: CERTOLIZUMAB PEGOL
  118. CIMZIA [Concomitant]
     Active Substance: CERTOLIZUMAB PEGOL
     Route: 058
  119. CIMZIA [Concomitant]
     Active Substance: CERTOLIZUMAB PEGOL
     Route: 058
  120. CIMZIA [Concomitant]
     Active Substance: CERTOLIZUMAB PEGOL
     Route: 005
  121. CIMZIA [Concomitant]
     Active Substance: CERTOLIZUMAB PEGOL
     Route: 058
  122. CIMZIA [Concomitant]
     Active Substance: CERTOLIZUMAB PEGOL
     Route: 058
  123. CIMZIA [Concomitant]
     Active Substance: CERTOLIZUMAB PEGOL
     Route: 058
  124. CORTISONE ACETATE [Concomitant]
     Active Substance: CORTISONE ACETATE
     Indication: Rheumatoid arthritis
     Route: 061
  125. CORTISONE ACETATE [Concomitant]
     Active Substance: CORTISONE ACETATE
     Route: 061
  126. CORTISONE ACETATE [Concomitant]
     Active Substance: CORTISONE ACETATE
     Route: 048
  127. CORTISONE ACETATE [Concomitant]
     Active Substance: CORTISONE ACETATE
     Route: 048
  128. CORTISONE ACETATE [Concomitant]
     Active Substance: CORTISONE ACETATE
  129. CORTISONE ACETATE [Concomitant]
     Active Substance: CORTISONE ACETATE
  130. CORTISONE ACETATE [Concomitant]
     Active Substance: CORTISONE ACETATE
     Route: 050
  131. CORTISONE ACETATE [Concomitant]
     Active Substance: CORTISONE ACETATE
  132. COSENTYX [Concomitant]
     Active Substance: SECUKINUMAB
     Indication: Rheumatoid arthritis
     Route: 042
  133. COSENTYX [Concomitant]
     Active Substance: SECUKINUMAB
     Route: 005
  134. COSENTYX [Concomitant]
     Active Substance: SECUKINUMAB
     Route: 005
  135. COSENTYX [Concomitant]
     Active Substance: SECUKINUMAB
     Route: 042
  136. DESOXIMETASONE [Concomitant]
     Active Substance: DESOXIMETASONE
     Indication: Rheumatoid arthritis
     Route: 061
  137. DESOXIMETASONE [Concomitant]
     Active Substance: DESOXIMETASONE
  138. DESOXIMETASONE [Concomitant]
     Active Substance: DESOXIMETASONE
     Route: 003
  139. DESOXIMETASONE [Concomitant]
     Active Substance: DESOXIMETASONE
     Route: 048
  140. DESOXIMETASONE [Concomitant]
     Active Substance: DESOXIMETASONE
     Route: 048
  141. DESOXIMETASONE [Concomitant]
     Active Substance: DESOXIMETASONE
     Route: 003
  142. DESOXIMETASONE [Concomitant]
     Active Substance: DESOXIMETASONE
     Route: 042
  143. DESOXIMETASONE [Concomitant]
     Active Substance: DESOXIMETASONE
     Route: 048
  144. DESOXIMETASONE [Concomitant]
     Active Substance: DESOXIMETASONE
     Route: 048
  145. DESOXIMETASONE [Concomitant]
     Active Substance: DESOXIMETASONE
     Route: 058
  146. DESOXIMETASONE [Concomitant]
     Active Substance: DESOXIMETASONE
  147. DESOXIMETASONE [Concomitant]
     Active Substance: DESOXIMETASONE
     Route: 003
  148. DESOXIMETASONE [Concomitant]
     Active Substance: DESOXIMETASONE
     Route: 058
  149. DESOXIMETASONE [Concomitant]
     Active Substance: DESOXIMETASONE
     Route: 061
  150. DESOXIMETASONE [Concomitant]
     Active Substance: DESOXIMETASONE
     Route: 048
  151. DESOXIMETASONE [Concomitant]
     Active Substance: DESOXIMETASONE
     Route: 058
  152. DESOXIMETASONE [Concomitant]
     Active Substance: DESOXIMETASONE
     Route: 003
  153. DESOXIMETASONE [Concomitant]
     Active Substance: DESOXIMETASONE
  154. DESOXIMETASONE [Concomitant]
     Active Substance: DESOXIMETASONE
     Route: 003
  155. DESOXIMETASONE [Concomitant]
     Active Substance: DESOXIMETASONE
  156. DESOXIMETASONE [Concomitant]
     Active Substance: DESOXIMETASONE
     Route: 048
  157. DESOXIMETASONE [Concomitant]
     Active Substance: DESOXIMETASONE
     Route: 061
  158. DICLOFENAC [Concomitant]
     Active Substance: DICLOFENAC
     Indication: Product used for unknown indication
  159. DICLOFENAC [Concomitant]
     Active Substance: DICLOFENAC
     Route: 047
  160. DICLOFENAC DIETHYLAMINE [Concomitant]
     Active Substance: DICLOFENAC DIETHYLAMINE
     Indication: Product used for unknown indication
  161. DICLOFENAC DIETHYLAMINE [Concomitant]
     Active Substance: DICLOFENAC DIETHYLAMINE
  162. DICLOFENAC DIETHYLAMINE [Concomitant]
     Active Substance: DICLOFENAC DIETHYLAMINE
     Route: 047
  163. DICLOFENAC DIETHYLAMINE [Concomitant]
     Active Substance: DICLOFENAC DIETHYLAMINE
     Route: 048
  164. DICLOFENAC POTASSIUM [Concomitant]
     Active Substance: DICLOFENAC POTASSIUM
     Indication: Product used for unknown indication
     Route: 058
  165. DICLOFENAC POTASSIUM [Concomitant]
     Active Substance: DICLOFENAC POTASSIUM
     Route: 048
  166. DICLOFENAC POTASSIUM [Concomitant]
     Active Substance: DICLOFENAC POTASSIUM
     Route: 058
  167. DICLOFENAC POTASSIUM [Concomitant]
     Active Substance: DICLOFENAC POTASSIUM
     Route: 048
  168. DICLOFENAC SODIUM [Concomitant]
     Active Substance: DICLOFENAC SODIUM
     Indication: Product used for unknown indication
     Route: 048
  169. DICLOFENAC SODIUM [Concomitant]
     Active Substance: DICLOFENAC SODIUM
     Route: 047
  170. DICLOFENAC SODIUM [Concomitant]
     Active Substance: DICLOFENAC SODIUM
     Route: 058
  171. DICLOFENAC SODIUM [Concomitant]
     Active Substance: DICLOFENAC SODIUM
  172. DICLOFENAC SODIUM [Concomitant]
     Active Substance: DICLOFENAC SODIUM
  173. DICLOFENAC SODIUM [Concomitant]
     Active Substance: DICLOFENAC SODIUM
  174. DICLOFENAC SODIUM [Concomitant]
     Active Substance: DICLOFENAC SODIUM
     Route: 047
  175. DICLOFENAC SODIUM [Concomitant]
     Active Substance: DICLOFENAC SODIUM
  176. DILTIAZEM [Concomitant]
     Active Substance: DILTIAZEM
     Indication: Product used for unknown indication
  177. DILTIAZEM HYDROCHLORIDE [Concomitant]
     Active Substance: DILTIAZEM HYDROCHLORIDE
     Indication: Product used for unknown indication
     Route: 042
  178. DILTIAZEM HYDROCHLORIDE [Concomitant]
     Active Substance: DILTIAZEM HYDROCHLORIDE
  179. DILTIAZEM HYDROCHLORIDE [Concomitant]
     Active Substance: DILTIAZEM HYDROCHLORIDE
  180. DOXYCYCLINE [Concomitant]
     Active Substance: DOXYCYCLINE
     Indication: Product used for unknown indication
  181. ENBREL [Concomitant]
     Active Substance: ETANERCEPT
     Indication: Rheumatoid arthritis
  182. ENBREL [Concomitant]
     Active Substance: ETANERCEPT
     Indication: Psoriatic arthropathy
  183. ENBREL [Concomitant]
     Active Substance: ETANERCEPT
     Route: 058
  184. ENBREL [Concomitant]
     Active Substance: ETANERCEPT
     Route: 058
  185. ENBREL [Concomitant]
     Active Substance: ETANERCEPT
  186. ENBREL [Concomitant]
     Active Substance: ETANERCEPT
     Route: 058
  187. ENBREL [Concomitant]
     Active Substance: ETANERCEPT
     Route: 058
  188. ENBREL [Concomitant]
     Active Substance: ETANERCEPT
     Route: 058
  189. ENBREL [Concomitant]
     Active Substance: ETANERCEPT
     Route: 058
  190. ENTYVIO [Concomitant]
     Active Substance: VEDOLIZUMAB
     Indication: Product used for unknown indication
  191. ERELZI [Concomitant]
     Active Substance: ETANERCEPT-SZZS
     Indication: Rheumatoid arthritis
  192. ERELZI [Concomitant]
     Active Substance: ETANERCEPT-SZZS
  193. ERELZI [Concomitant]
     Active Substance: ETANERCEPT-SZZS
  194. ERELZI [Concomitant]
     Active Substance: ETANERCEPT-SZZS
     Route: 058
  195. ERELZI [Concomitant]
     Active Substance: ETANERCEPT-SZZS
     Route: 058
  196. FLUMETHASONE PIVALATE [Concomitant]
     Active Substance: FLUMETHASONE PIVALATE
     Indication: Rheumatoid arthritis
     Route: 003
  197. FLUMETHASONE PIVALATE [Concomitant]
     Active Substance: FLUMETHASONE PIVALATE
  198. FLUMETHASONE PIVALATE [Concomitant]
     Active Substance: FLUMETHASONE PIVALATE
  199. FLUMETHASONE PIVALATE [Concomitant]
     Active Substance: FLUMETHASONE PIVALATE
     Route: 003
  200. FOLIC ACID [Concomitant]
     Active Substance: FOLIC ACID
     Indication: Rheumatoid arthritis
  201. FOLIC ACID [Concomitant]
     Active Substance: FOLIC ACID
  202. FOLIC ACID [Concomitant]
     Active Substance: FOLIC ACID
  203. FOLIC ACID [Concomitant]
     Active Substance: FOLIC ACID
     Route: 048
  204. FOLIC ACID [Concomitant]
     Active Substance: FOLIC ACID
  205. FOLIC ACID [Concomitant]
     Active Substance: FOLIC ACID
     Route: 058
  206. FOLIC ACID [Concomitant]
     Active Substance: FOLIC ACID
  207. FOLIC ACID [Concomitant]
     Active Substance: FOLIC ACID
  208. FOLIC ACID [Concomitant]
     Active Substance: FOLIC ACID
     Route: 048
  209. FOLIC ACID [Concomitant]
     Active Substance: FOLIC ACID
     Route: 048
  210. FOLIC ACID [Concomitant]
     Active Substance: FOLIC ACID
     Route: 048
  211. FOLIC ACID [Concomitant]
     Active Substance: FOLIC ACID
  212. FOLIC ACID [Concomitant]
     Active Substance: FOLIC ACID
  213. FOLIC ACID [Concomitant]
     Active Substance: FOLIC ACID
  214. FOLIC ACID [Concomitant]
     Active Substance: FOLIC ACID
  215. FOLIC ACID [Concomitant]
     Active Substance: FOLIC ACID
  216. FOLIC ACID [Concomitant]
     Active Substance: FOLIC ACID
  217. FOLIC ACID [Concomitant]
     Active Substance: FOLIC ACID
  218. FOLIC ACID [Concomitant]
     Active Substance: FOLIC ACID
  219. FOLIC ACID [Concomitant]
     Active Substance: FOLIC ACID
  220. FOLIC ACID [Concomitant]
     Active Substance: FOLIC ACID
  221. FOLIC ACID [Concomitant]
     Active Substance: FOLIC ACID
     Route: 048
  222. FOLIC ACID [Concomitant]
     Active Substance: FOLIC ACID
  223. FOLIC ACID [Concomitant]
     Active Substance: FOLIC ACID
     Route: 048
  224. FOSAMAX [Concomitant]
     Active Substance: ALENDRONATE SODIUM
     Indication: Rheumatoid arthritis
  225. FOSAMAX [Concomitant]
     Active Substance: ALENDRONATE SODIUM
     Route: 048
  226. FOSAMAX [Concomitant]
     Active Substance: ALENDRONATE SODIUM
     Route: 016
  227. FOSAMAX [Concomitant]
     Active Substance: ALENDRONATE SODIUM
     Route: 058
  228. FOSAMAX [Concomitant]
     Active Substance: ALENDRONATE SODIUM
     Route: 048
  229. FOSAMAX [Concomitant]
     Active Substance: ALENDRONATE SODIUM
     Route: 048
  230. FOSAMAX [Concomitant]
     Active Substance: ALENDRONATE SODIUM
     Route: 005
  231. FOSAMAX [Concomitant]
     Active Substance: ALENDRONATE SODIUM
     Route: 005
  232. FOSAMAX [Concomitant]
     Active Substance: ALENDRONATE SODIUM
  233. FOSAMAX [Concomitant]
     Active Substance: ALENDRONATE SODIUM
     Route: 048
  234. FOSAMAX [Concomitant]
     Active Substance: ALENDRONATE SODIUM
     Route: 048
  235. FOSAMAX [Concomitant]
     Active Substance: ALENDRONATE SODIUM
     Route: 048
  236. FOSAMAX [Concomitant]
     Active Substance: ALENDRONATE SODIUM
  237. GOLIMUMAB [Concomitant]
     Active Substance: GOLIMUMAB
     Indication: Rheumatoid arthritis
  238. GOLIMUMAB [Concomitant]
     Active Substance: GOLIMUMAB
     Route: 058
  239. HUMIRA [Concomitant]
     Active Substance: ADALIMUMAB
     Indication: Rheumatoid arthritis
     Route: 058
  240. HUMIRA [Concomitant]
     Active Substance: ADALIMUMAB
     Indication: Psoriatic arthropathy
     Route: 058
  241. HUMIRA [Concomitant]
     Active Substance: ADALIMUMAB
  242. HUMIRA [Concomitant]
     Active Substance: ADALIMUMAB
     Route: 058
  243. HUMIRA [Concomitant]
     Active Substance: ADALIMUMAB
     Route: 058
  244. HUMIRA [Concomitant]
     Active Substance: ADALIMUMAB
     Route: 058
  245. HYDROCORTISONE SODIUM SUCCINATE [Concomitant]
     Active Substance: HYDROCORTISONE SODIUM SUCCINATE
     Indication: Rheumatoid arthritis
  246. HYDROCORTISONE SODIUM SUCCINATE [Concomitant]
     Active Substance: HYDROCORTISONE SODIUM SUCCINATE
     Route: 003
  247. HYDROCORTISONE SODIUM SUCCINATE [Concomitant]
     Active Substance: HYDROCORTISONE SODIUM SUCCINATE
     Route: 058
  248. HYDROCORTISONE SODIUM SUCCINATE [Concomitant]
     Active Substance: HYDROCORTISONE SODIUM SUCCINATE
  249. HYDROCORTISONE SODIUM SUCCINATE [Concomitant]
     Active Substance: HYDROCORTISONE SODIUM SUCCINATE
     Route: 058
  250. HYDROCORTISONE SODIUM SUCCINATE [Concomitant]
     Active Substance: HYDROCORTISONE SODIUM SUCCINATE
  251. HYDROCORTISONE SODIUM SUCCINATE [Concomitant]
     Active Substance: HYDROCORTISONE SODIUM SUCCINATE
     Route: 061
  252. HYDROCORTISONE SODIUM SUCCINATE [Concomitant]
     Active Substance: HYDROCORTISONE SODIUM SUCCINATE
     Route: 048
  253. HYDROCORTISONE SODIUM SUCCINATE [Concomitant]
     Active Substance: HYDROCORTISONE SODIUM SUCCINATE
  254. HYDROCORTISONE SODIUM SUCCINATE [Concomitant]
     Active Substance: HYDROCORTISONE SODIUM SUCCINATE
     Route: 061
  255. HYDROCORTISONE SODIUM SUCCINATE [Concomitant]
     Active Substance: HYDROCORTISONE SODIUM SUCCINATE
  256. HYDROXYCHLOROQUINE [Concomitant]
     Active Substance: HYDROXYCHLOROQUINE
     Indication: Rheumatoid arthritis
  257. HYDROXYCHLOROQUINE [Concomitant]
     Active Substance: HYDROXYCHLOROQUINE
     Route: 048
  258. HYDROXYCHLOROQUINE [Concomitant]
     Active Substance: HYDROXYCHLOROQUINE
  259. HYDROXYCHLOROQUINE [Concomitant]
     Active Substance: HYDROXYCHLOROQUINE
  260. HYDROXYCHLOROQUINE [Concomitant]
     Active Substance: HYDROXYCHLOROQUINE
  261. HYDROXYCHLOROQUINE [Concomitant]
     Active Substance: HYDROXYCHLOROQUINE
  262. HYDROXYCHLOROQUINE [Concomitant]
     Active Substance: HYDROXYCHLOROQUINE
  263. HYDROXYCHLOROQUINE [Concomitant]
     Active Substance: HYDROXYCHLOROQUINE
  264. HYDROXYCHLOROQUINE [Concomitant]
     Active Substance: HYDROXYCHLOROQUINE
  265. HYDROXYCHLOROQUINE [Concomitant]
     Active Substance: HYDROXYCHLOROQUINE
  266. HYDROXYCHLOROQUINE [Concomitant]
     Active Substance: HYDROXYCHLOROQUINE
     Route: 058
  267. HYDROXYCHLOROQUINE [Concomitant]
     Active Substance: HYDROXYCHLOROQUINE
     Route: 048
  268. HYDROXYCHLOROQUINE [Concomitant]
     Active Substance: HYDROXYCHLOROQUINE
  269. HYDROXYCHLOROQUINE [Concomitant]
     Active Substance: HYDROXYCHLOROQUINE
  270. HYDROXYCHLOROQUINE SULFATE [Concomitant]
     Active Substance: HYDROXYCHLOROQUINE SULFATE
     Indication: Rheumatoid arthritis
     Route: 048
  271. HYDROXYCHLOROQUINE SULFATE [Concomitant]
     Active Substance: HYDROXYCHLOROQUINE SULFATE
  272. HYDROXYCHLOROQUINE SULFATE [Concomitant]
     Active Substance: HYDROXYCHLOROQUINE SULFATE
     Route: 048
  273. HYDROXYCHLOROQUINE SULFATE [Concomitant]
     Active Substance: HYDROXYCHLOROQUINE SULFATE
     Route: 048
  274. HYDROXYCHLOROQUINE SULFATE [Concomitant]
     Active Substance: HYDROXYCHLOROQUINE SULFATE
  275. HYDROXYCHLOROQUINE SULFATE [Concomitant]
     Active Substance: HYDROXYCHLOROQUINE SULFATE
     Route: 048
  276. HYDROXYCHLOROQUINE SULFATE [Concomitant]
     Active Substance: HYDROXYCHLOROQUINE SULFATE
  277. HYDROXYCHLOROQUINE SULFATE [Concomitant]
     Active Substance: HYDROXYCHLOROQUINE SULFATE
     Route: 048
  278. INFLIXIMAB [Concomitant]
     Active Substance: INFLIXIMAB
     Indication: Rheumatoid arthritis
  279. INFLIXIMAB [Concomitant]
     Active Substance: INFLIXIMAB
     Route: 042
  280. INFLIXIMAB [Concomitant]
     Active Substance: INFLIXIMAB
  281. INFLIXIMAB [Concomitant]
     Active Substance: INFLIXIMAB
     Route: 042
  282. INFLIXIMAB [Concomitant]
     Active Substance: INFLIXIMAB
     Route: 042
  283. INFLIXIMAB [Concomitant]
     Active Substance: INFLIXIMAB
     Route: 042
  284. ISOPROPYL ALCOHOL [Concomitant]
     Active Substance: ISOPROPYL ALCOHOL
     Indication: Product used for unknown indication
     Route: 061
  285. ISOPROPYL ALCOHOL [Concomitant]
     Active Substance: ISOPROPYL ALCOHOL
  286. LEFLUNOMIDE [Concomitant]
     Active Substance: LEFLUNOMIDE
     Indication: Rheumatoid arthritis
     Route: 048
  287. LEFLUNOMIDE [Concomitant]
     Active Substance: LEFLUNOMIDE
     Route: 048
  288. LEFLUNOMIDE [Concomitant]
     Active Substance: LEFLUNOMIDE
     Route: 048
  289. LYRICA [Concomitant]
     Active Substance: PREGABALIN
     Indication: Product used for unknown indication
  290. METHOTREXATE [Concomitant]
     Active Substance: METHOTREXATE
     Indication: Rheumatoid arthritis
     Route: 058
  291. METHOTREXATE [Concomitant]
     Active Substance: METHOTREXATE
     Route: 013
  292. METHOTREXATE [Concomitant]
     Active Substance: METHOTREXATE
  293. METHOTREXATE [Concomitant]
     Active Substance: METHOTREXATE
     Route: 048
  294. METHOTREXATE [Concomitant]
     Active Substance: METHOTREXATE
     Route: 048
  295. METHOTREXATE [Concomitant]
     Active Substance: METHOTREXATE
     Route: 048
  296. METHOTREXATE [Concomitant]
     Active Substance: METHOTREXATE
     Route: 048
  297. METHOTREXATE [Concomitant]
     Active Substance: METHOTREXATE
     Route: 048
  298. METHOTREXATE [Concomitant]
     Active Substance: METHOTREXATE
     Route: 048
  299. METHOTREXATE [Concomitant]
     Active Substance: METHOTREXATE
     Route: 048
  300. METHOTREXATE [Concomitant]
     Active Substance: METHOTREXATE
     Route: 048
  301. METHOTREXATE [Concomitant]
     Active Substance: METHOTREXATE
     Route: 048
  302. METHOTREXATE [Concomitant]
     Active Substance: METHOTREXATE
     Route: 048
  303. METHOTREXATE [Concomitant]
     Active Substance: METHOTREXATE
     Route: 048
  304. METHOTREXATE [Concomitant]
     Active Substance: METHOTREXATE
     Route: 048
  305. METHOTREXATE [Concomitant]
     Active Substance: METHOTREXATE
     Route: 048
  306. METHOTREXATE [Concomitant]
     Active Substance: METHOTREXATE
     Route: 048
  307. METHOTREXATE [Concomitant]
     Active Substance: METHOTREXATE
     Route: 048
  308. METHOTREXATE [Concomitant]
     Active Substance: METHOTREXATE
     Route: 048
  309. METHOTREXATE [Concomitant]
     Active Substance: METHOTREXATE
  310. METHOTREXATE [Concomitant]
     Active Substance: METHOTREXATE
     Route: 058
  311. MYCOPHENOLATE MOFETIL [Concomitant]
     Active Substance: MYCOPHENOLATE MOFETIL
     Indication: Product used for unknown indication
  312. NAPROXEN SODIUM [Concomitant]
     Active Substance: NAPROXEN SODIUM
     Indication: Rheumatoid arthritis
  313. NAPROXEN SODIUM [Concomitant]
     Active Substance: NAPROXEN SODIUM
  314. ALFACALCIDOL [Concomitant]
     Active Substance: ALFACALCIDOL
     Indication: Product used for unknown indication
  315. PERIOGARD [Concomitant]
     Active Substance: CHLORHEXIDINE GLUCONATE
     Indication: Product used for unknown indication
     Route: 048
  316. PERIOGARD [Concomitant]
     Active Substance: CHLORHEXIDINE GLUCONATE
     Route: 002
  317. PERIOGARD [Concomitant]
     Active Substance: CHLORHEXIDINE GLUCONATE
  318. PERIOGARD [Concomitant]
     Active Substance: CHLORHEXIDINE GLUCONATE
  319. PHTHALYLSULFATHIAZOLE [Concomitant]
     Active Substance: PHTHALYLSULFATHIAZOLE
     Indication: Rheumatoid arthritis
     Route: 048
  320. PHTHALYLSULFATHIAZOLE [Concomitant]
     Active Substance: PHTHALYLSULFATHIAZOLE
  321. PHTHALYLSULFATHIAZOLE [Concomitant]
     Active Substance: PHTHALYLSULFATHIAZOLE
  322. PHTHALYLSULFATHIAZOLE [Concomitant]
     Active Substance: PHTHALYLSULFATHIAZOLE
     Route: 042
  323. PHTHALYLSULFATHIAZOLE [Concomitant]
     Active Substance: PHTHALYLSULFATHIAZOLE
     Route: 048
  324. PHTHALYLSULFATHIAZOLE [Concomitant]
     Active Substance: PHTHALYLSULFATHIAZOLE
  325. PHTHALYLSULFATHIAZOLE [Concomitant]
     Active Substance: PHTHALYLSULFATHIAZOLE
     Route: 048
  326. PHTHALYLSULFATHIAZOLE [Concomitant]
     Active Substance: PHTHALYLSULFATHIAZOLE
     Route: 048
  327. PHTHALYLSULFATHIAZOLE [Concomitant]
     Active Substance: PHTHALYLSULFATHIAZOLE
     Route: 048
  328. PHTHALYLSULFATHIAZOLE [Concomitant]
     Active Substance: PHTHALYLSULFATHIAZOLE
     Route: 048
  329. PHTHALYLSULFATHIAZOLE [Concomitant]
     Active Substance: PHTHALYLSULFATHIAZOLE
     Route: 048
  330. PHTHALYLSULFATHIAZOLE [Concomitant]
     Active Substance: PHTHALYLSULFATHIAZOLE
     Route: 058
  331. PHTHALYLSULFATHIAZOLE [Concomitant]
     Active Substance: PHTHALYLSULFATHIAZOLE
     Route: 048
  332. PHTHALYLSULFATHIAZOLE [Concomitant]
     Active Substance: PHTHALYLSULFATHIAZOLE
     Route: 016
  333. PHTHALYLSULFATHIAZOLE [Concomitant]
     Active Substance: PHTHALYLSULFATHIAZOLE
  334. PHTHALYLSULFATHIAZOLE [Concomitant]
     Active Substance: PHTHALYLSULFATHIAZOLE
     Route: 048
  335. PHTHALYLSULFATHIAZOLE [Concomitant]
     Active Substance: PHTHALYLSULFATHIAZOLE
     Route: 048
  336. PHTHALYLSULFATHIAZOLE [Concomitant]
     Active Substance: PHTHALYLSULFATHIAZOLE
     Route: 048
  337. PHTHALYLSULFATHIAZOLE [Concomitant]
     Active Substance: PHTHALYLSULFATHIAZOLE
     Route: 048
  338. PREDNISOLONE [Concomitant]
     Active Substance: PREDNISOLONE
     Indication: Product used for unknown indication
  339. PREDNISOLONE [Concomitant]
     Active Substance: PREDNISOLONE
  340. PREDNISOLONE [Concomitant]
     Active Substance: PREDNISOLONE
     Route: 048
  341. PREDNISOLONE [Concomitant]
     Active Substance: PREDNISOLONE
     Route: 048
  342. PREDNISONE [Concomitant]
     Active Substance: PREDNISONE
     Indication: Rheumatoid arthritis
     Route: 048
  343. PREDNISONE [Concomitant]
     Active Substance: PREDNISONE
     Indication: Psoriatic arthropathy
  344. PREDNISONE [Concomitant]
     Active Substance: PREDNISONE
     Indication: Condition aggravated
     Route: 042
  345. PREDNISONE [Concomitant]
     Active Substance: PREDNISONE
  346. PREDNISONE [Concomitant]
     Active Substance: PREDNISONE
     Route: 048
  347. PREDNISONE [Concomitant]
     Active Substance: PREDNISONE
     Route: 048
  348. PREDNISONE [Concomitant]
     Active Substance: PREDNISONE
     Route: 048
  349. PREDNISONE [Concomitant]
     Active Substance: PREDNISONE
     Route: 048
  350. PREDNISONE [Concomitant]
     Active Substance: PREDNISONE
  351. PREDNISONE [Concomitant]
     Active Substance: PREDNISONE
     Route: 048
  352. PREDNISONE [Concomitant]
     Active Substance: PREDNISONE
  353. PREGABALIN [Concomitant]
     Active Substance: PREGABALIN
     Indication: Product used for unknown indication
  354. PSEUDOEPHEDRINE HYDROCHLORIDE [Concomitant]
     Active Substance: PSEUDOEPHEDRINE HYDROCHLORIDE
     Indication: Product used for unknown indication
  355. PSEUDOEPHEDRINE HYDROCHLORIDE [Concomitant]
     Active Substance: PSEUDOEPHEDRINE HYDROCHLORIDE
  356. PSEUDOEPHEDRINE HYDROCHLORIDE [Concomitant]
     Active Substance: PSEUDOEPHEDRINE HYDROCHLORIDE
  357. PSEUDOEPHEDRINE HYDROCHLORIDE [Concomitant]
     Active Substance: PSEUDOEPHEDRINE HYDROCHLORIDE
  358. CETIRIZINE HYDROCHLORIDE\PSEUDOEPHEDRINE HYDROCHLORIDE [Concomitant]
     Active Substance: CETIRIZINE HYDROCHLORIDE\PSEUDOEPHEDRINE HYDROCHLORIDE
     Indication: Rheumatoid arthritis
  359. CETIRIZINE HYDROCHLORIDE\PSEUDOEPHEDRINE HYDROCHLORIDE [Concomitant]
     Active Substance: CETIRIZINE HYDROCHLORIDE\PSEUDOEPHEDRINE HYDROCHLORIDE
     Route: 048
  360. CETIRIZINE HYDROCHLORIDE\PSEUDOEPHEDRINE HYDROCHLORIDE [Concomitant]
     Active Substance: CETIRIZINE HYDROCHLORIDE\PSEUDOEPHEDRINE HYDROCHLORIDE
  361. CETIRIZINE HYDROCHLORIDE\PSEUDOEPHEDRINE HYDROCHLORIDE [Concomitant]
     Active Substance: CETIRIZINE HYDROCHLORIDE\PSEUDOEPHEDRINE HYDROCHLORIDE
  362. CETIRIZINE HYDROCHLORIDE\PSEUDOEPHEDRINE HYDROCHLORIDE [Concomitant]
     Active Substance: CETIRIZINE HYDROCHLORIDE\PSEUDOEPHEDRINE HYDROCHLORIDE
  363. CETIRIZINE HYDROCHLORIDE\PSEUDOEPHEDRINE HYDROCHLORIDE [Concomitant]
     Active Substance: CETIRIZINE HYDROCHLORIDE\PSEUDOEPHEDRINE HYDROCHLORIDE
  364. REMICADE [Concomitant]
     Active Substance: INFLIXIMAB
     Indication: Rheumatoid arthritis
  365. REMICADE [Concomitant]
     Active Substance: INFLIXIMAB
     Route: 042
  366. REMICADE [Concomitant]
     Active Substance: INFLIXIMAB
     Route: 042
  367. RITUXIMAB [Concomitant]
     Active Substance: RITUXIMAB
     Indication: Rheumatoid arthritis
     Route: 058
  368. RITUXIMAB [Concomitant]
     Active Substance: RITUXIMAB
     Route: 042
  369. RITUXIMAB [Concomitant]
     Active Substance: RITUXIMAB
  370. RITUXIMAB [Concomitant]
     Active Substance: RITUXIMAB
     Route: 016
  371. RITUXIMAB [Concomitant]
     Active Substance: RITUXIMAB
     Route: 058
  372. RITUXIMAB [Concomitant]
     Active Substance: RITUXIMAB
     Route: 016
  373. RITUXIMAB [Concomitant]
     Active Substance: RITUXIMAB
  374. DIETARY SUPPLEMENT\HERBALS [Concomitant]
     Active Substance: DIETARY SUPPLEMENT\HERBALS
     Indication: Product used for unknown indication
     Route: 048
  375. SIMPONI [Concomitant]
     Active Substance: GOLIMUMAB
     Indication: Rheumatoid arthritis
     Route: 058
  376. SIMPONI [Concomitant]
     Active Substance: GOLIMUMAB
     Route: 052
  377. SIMPONI [Concomitant]
     Active Substance: GOLIMUMAB
  378. SIMPONI [Concomitant]
     Active Substance: GOLIMUMAB
     Route: 042
  379. SIMPONI [Concomitant]
     Active Substance: GOLIMUMAB
     Route: 058
  380. SIMPONI [Concomitant]
     Active Substance: GOLIMUMAB
     Route: 042
  381. STELARA [Concomitant]
     Active Substance: USTEKINUMAB
     Indication: Rheumatoid arthritis
     Route: 042
  382. STELARA [Concomitant]
     Active Substance: USTEKINUMAB
     Route: 058
  383. STELARA [Concomitant]
     Active Substance: USTEKINUMAB
     Route: 042
  384. STELARA [Concomitant]
     Active Substance: USTEKINUMAB
     Route: 058
  385. STELARA [Concomitant]
     Active Substance: USTEKINUMAB
     Route: 058
  386. STELARA [Concomitant]
     Active Substance: USTEKINUMAB
     Route: 042
  387. STELARA [Concomitant]
     Active Substance: USTEKINUMAB
     Route: 042
  388. STELARA [Concomitant]
     Active Substance: USTEKINUMAB
     Route: 058
  389. SULFAMETHOXAZOLE [Concomitant]
     Active Substance: SULFAMETHOXAZOLE
     Indication: Rheumatoid arthritis
  390. SULFAMETHOXAZOLE\TRIMETHOPRIM [Concomitant]
     Active Substance: SULFAMETHOXAZOLE\TRIMETHOPRIM
     Indication: Product used for unknown indication
  391. SULFAMETHOXAZOLE\TRIMETHOPRIM [Concomitant]
     Active Substance: SULFAMETHOXAZOLE\TRIMETHOPRIM
  392. SULFAMETHOXAZOLE\TRIMETHOPRIM [Concomitant]
     Active Substance: SULFAMETHOXAZOLE\TRIMETHOPRIM
  393. SULFAMETHOXAZOLE\TRIMETHOPRIM [Concomitant]
     Active Substance: SULFAMETHOXAZOLE\TRIMETHOPRIM
     Route: 067
  394. SULFASALAZINE [Concomitant]
     Active Substance: SULFASALAZINE
     Indication: Product used for unknown indication
     Route: 048
  395. SULFASALAZINE [Concomitant]
     Active Substance: SULFASALAZINE
     Route: 058
  396. SULFASALAZINE [Concomitant]
     Active Substance: SULFASALAZINE
  397. SULFASALAZINE [Concomitant]
     Active Substance: SULFASALAZINE
     Route: 048
  398. SULFASALAZINE [Concomitant]
     Active Substance: SULFASALAZINE
     Route: 048
  399. SULFASALAZINE [Concomitant]
     Active Substance: SULFASALAZINE
  400. SULFASALAZINE [Concomitant]
     Active Substance: SULFASALAZINE
     Route: 048
  401. SULFASALAZINE [Concomitant]
     Active Substance: SULFASALAZINE
     Route: 058
  402. SULFASALAZINE [Concomitant]
     Active Substance: SULFASALAZINE
     Route: 058
  403. SULFASALAZINE [Concomitant]
     Active Substance: SULFASALAZINE
     Route: 048
  404. SULFASALAZINE [Concomitant]
     Active Substance: SULFASALAZINE
     Route: 048
  405. SULFASALAZINE [Concomitant]
     Active Substance: SULFASALAZINE
     Route: 048
  406. SULFASALAZINE [Concomitant]
     Active Substance: SULFASALAZINE
     Route: 048
  407. SULFASALAZINE [Concomitant]
     Active Substance: SULFASALAZINE
     Route: 048
  408. SULFASALAZINE [Concomitant]
     Active Substance: SULFASALAZINE
     Route: 048
  409. SULFASALAZINE [Concomitant]
     Active Substance: SULFASALAZINE
     Route: 048
  410. SULFASALAZINE [Concomitant]
     Active Substance: SULFASALAZINE
     Route: 048
  411. SULFASALAZINE [Concomitant]
     Active Substance: SULFASALAZINE
  412. SULFASALAZINE [Concomitant]
     Active Substance: SULFASALAZINE
     Route: 048
  413. SULFASALAZINE [Concomitant]
     Active Substance: SULFASALAZINE
     Route: 048
  414. SULFASALAZINE [Concomitant]
     Active Substance: SULFASALAZINE
  415. SULFASALAZINE [Concomitant]
     Active Substance: SULFASALAZINE
     Route: 048
  416. SULFASALAZINE [Concomitant]
     Active Substance: SULFASALAZINE
  417. SULFASALAZINE [Concomitant]
     Active Substance: SULFASALAZINE
     Route: 048
  418. SULFASALAZINE [Concomitant]
     Active Substance: SULFASALAZINE
  419. SULFASALAZINE [Concomitant]
     Active Substance: SULFASALAZINE
     Route: 048
  420. SULFASALAZINE [Concomitant]
     Active Substance: SULFASALAZINE
     Route: 048
  421. SULFASALAZINE [Concomitant]
     Active Substance: SULFASALAZINE
     Route: 048
  422. SULFASALAZINE [Concomitant]
     Active Substance: SULFASALAZINE
     Route: 048
  423. SULFASALAZINE [Concomitant]
     Active Substance: SULFASALAZINE
     Route: 048
  424. SULFASALAZINE [Concomitant]
     Active Substance: SULFASALAZINE
  425. SULFASALAZINE [Concomitant]
     Active Substance: SULFASALAZINE
     Route: 048
  426. SULFASALAZINE [Concomitant]
     Active Substance: SULFASALAZINE
     Route: 048
  427. SULFASALAZINE [Concomitant]
     Active Substance: SULFASALAZINE
     Route: 048
  428. SULFASALAZINE [Concomitant]
     Active Substance: SULFASALAZINE
     Route: 048
  429. SULFASALAZINE [Concomitant]
     Active Substance: SULFASALAZINE
     Route: 048
  430. TOFACITINIB CITRATE [Concomitant]
     Active Substance: TOFACITINIB CITRATE
     Indication: Rheumatoid arthritis
  431. TOFACITINIB CITRATE [Concomitant]
     Active Substance: TOFACITINIB CITRATE
     Indication: Psoriatic arthropathy
     Route: 048
  432. TOFACITINIB CITRATE [Concomitant]
     Active Substance: TOFACITINIB CITRATE
     Route: 048
  433. TOFACITINIB CITRATE [Concomitant]
     Active Substance: TOFACITINIB CITRATE
  434. TOFACITINIB CITRATE [Concomitant]
     Active Substance: TOFACITINIB CITRATE
     Route: 058
  435. VITAMIN C [Concomitant]
     Active Substance: ASCORBIC ACID
     Indication: Product used for unknown indication
  436. PREDNISONE [Concomitant]
     Active Substance: PREDNISONE
     Indication: Rheumatoid arthritis
     Route: 048
  437. XELJANZ [Concomitant]
     Active Substance: TOFACITINIB CITRATE
     Indication: Rheumatoid arthritis
  438. XELJANZ [Concomitant]
     Active Substance: TOFACITINIB CITRATE
  439. XELJANZ [Concomitant]
     Active Substance: TOFACITINIB CITRATE
     Route: 048
  440. XELJANZ [Concomitant]
     Active Substance: TOFACITINIB CITRATE
  441. XELJANZ [Concomitant]
     Active Substance: TOFACITINIB CITRATE
  442. XELJANZ [Concomitant]
     Active Substance: TOFACITINIB CITRATE
     Route: 048
  443. XELJANZ [Concomitant]
     Active Substance: TOFACITINIB CITRATE
  444. XELJANZ [Concomitant]
     Active Substance: TOFACITINIB CITRATE
  445. XELJANZ [Concomitant]
     Active Substance: TOFACITINIB CITRATE
  446. XELJANZ [Concomitant]
     Active Substance: TOFACITINIB CITRATE
  447. COD LIVER OIL [Concomitant]
     Active Substance: COD LIVER OIL
     Indication: Product used for unknown indication
  448. IODINE [Concomitant]
     Active Substance: IODINE
     Indication: Product used for unknown indication
  449. TUMS [Concomitant]
     Active Substance: CALCIUM CARBONATE
     Indication: Product used for unknown indication
  450. ALFACALCIDOL [Concomitant]
     Active Substance: ALFACALCIDOL
     Indication: Product used for unknown indication
  451. CALCIUM CARBONATE\CHOLECALCIFEROL [Concomitant]
     Active Substance: CALCIUM CARBONATE\CHOLECALCIFEROL
  452. CHLORHEXIDINE GLUCONATE\ISOPROPYL ALCOHOL [Concomitant]
     Active Substance: CHLORHEXIDINE GLUCONATE\ISOPROPYL ALCOHOL
     Route: 002
  453. CHLORHEXIDINE GLUCONATE\ISOPROPYL ALCOHOL [Concomitant]
     Active Substance: CHLORHEXIDINE GLUCONATE\ISOPROPYL ALCOHOL
     Route: 061
  454. CHLORHEXIDINE GLUCONATE\ISOPROPYL ALCOHOL [Concomitant]
     Active Substance: CHLORHEXIDINE GLUCONATE\ISOPROPYL ALCOHOL
     Route: 048
  455. EMEND [Concomitant]
     Active Substance: APREPITANT
  456. EMEND [Concomitant]
     Active Substance: APREPITANT
     Route: 042
  457. EMEND [Concomitant]
     Active Substance: APREPITANT
     Route: 048
  458. OTEZLA [Concomitant]
     Active Substance: APREMILAST
  459. OTEZLA [Concomitant]
     Active Substance: APREMILAST
     Route: 048
  460. DICLOFENAC [Concomitant]
     Active Substance: DICLOFENAC

REACTIONS (13)
  - Fatigue [Unknown]
  - Fibromyalgia [Unknown]
  - Folliculitis [Unknown]
  - Gait inability [Unknown]
  - Gastrointestinal disorder [Unknown]
  - Glossodynia [Unknown]
  - Hand deformity [Unknown]
  - Headache [Unknown]
  - Helicobacter infection [Unknown]
  - Hypersensitivity [Unknown]
  - Adverse event [Unknown]
  - Hospitalisation [Unknown]
  - Off label use [Unknown]
